FAERS Safety Report 20891046 (Version 3)
Quarter: 2022Q3

REPORT INFORMATION
  Report Type: Spontaneous
  Country: US (occurrence: US)
  Receive Date: 20220530
  Receipt Date: 20220901
  Transmission Date: 20221026
  Serious: Yes (Life-Threatening, Other)
  Sender: FDA-Public Use
  Company Number: US-PFIZER INC-202200732262

PATIENT
  Age: 43 Year
  Sex: Male
  Weight: 106 kg

DRUGS (1)
  1. BIVALIRUDIN [Suspect]
     Active Substance: BIVALIRUDIN
     Indication: Thrombosis
     Dosage: INFUSION

REACTIONS (3)
  - Haemorrhage [Unknown]
  - Haematoma [Unknown]
  - Anaemia [Unknown]
